FAERS Safety Report 14976673 (Version 6)
Quarter: 2019Q3

REPORT INFORMATION
  Report Type: Spontaneous
  Country: US (occurrence: US)
  Receive Date: 20180605
  Receipt Date: 20190710
  Transmission Date: 20191004
  Serious: Yes (Hospitalization)
  Sender: FDA-Public Use
  Company Number: US-ACTELION-A-US2018-173099

PATIENT
  Age: 34 Year
  Sex: Female

DRUGS (4)
  1. VELETRI [Suspect]
     Active Substance: EPOPROSTENOL
     Indication: PULMONARY ARTERIAL HYPERTENSION
     Dosage: 20 NG/KG, PER MIN
     Route: 042
     Dates: start: 20180510, end: 20190401
  2. VELETRI [Suspect]
     Active Substance: EPOPROSTENOL
     Dosage: 33 NG/KG, PER MIN
     Route: 042
     Dates: start: 20180510
  3. OPSUMIT [Suspect]
     Active Substance: MACITENTAN
     Indication: PULMONARY ARTERIAL HYPERTENSION
     Dosage: 10 MG, QD
     Route: 048
     Dates: start: 20180321
  4. SILDENAFIL. [Concomitant]
     Active Substance: SILDENAFIL
     Dosage: 20 MG, TID
     Dates: start: 20180515

REACTIONS (16)
  - Catheter management [Unknown]
  - Decreased appetite [Unknown]
  - Catheter site discharge [Unknown]
  - Nausea [Unknown]
  - Catheter site irritation [Unknown]
  - Peripheral swelling [Unknown]
  - Diarrhoea [Unknown]
  - Catheter site erythema [Unknown]
  - Vascular device infection [Unknown]
  - Bacteraemia [Unknown]
  - Swelling face [Unknown]
  - Pruritus [Unknown]
  - Catheter site pruritus [Unknown]
  - Condition aggravated [Unknown]
  - Pain in extremity [Unknown]
  - Drug ineffective [Recovered/Resolved]

NARRATIVE: CASE EVENT DATE: 20180511
